FAERS Safety Report 4892429-2 (Version None)
Quarter: 2006Q1

REPORT INFORMATION
  Report Type: 
  Country: None (occurrence: None)
  Receive Date: 20060124
  Receipt Date: 20060111
  Transmission Date: 20060701
  Serious: Yes (Life-Threatening, Hospitalization, Other)
  Sender: FDA-Public Use
  Company Number: 2006001615

PATIENT
  Age: 56 Year
  Sex: Female

DRUGS (3)
  1. FLUCAM (AMPIROXICAM) [Suspect]
     Indication: PERIARTHRITIS
     Dosage: 1 IN 1 D, ORAL
     Route: 048
     Dates: start: 20050809, end: 20050829
  2. ETODOLAC [Suspect]
     Indication: ILL-DEFINED DISORDER
     Dosage: 400 MG (200 M G, 2 IN 1 D), ORAL
     Route: 048
     Dates: start: 20051001, end: 20051122
  3. FAMOTIDINE [Concomitant]

REACTIONS (4)
  - AGRANULOCYTOSIS [None]
  - DRUG INEFFECTIVE [None]
  - LARYNGOPHARYNGITIS [None]
  - PYREXIA [None]
